FAERS Safety Report 20844108 (Version 1)
Quarter: 2022Q2

REPORT INFORMATION
  Report Type: Report from Study
  Country: BR (occurrence: BR)
  Receive Date: 20220518
  Receipt Date: 20220518
  Transmission Date: 20220720
  Serious: Yes (Other)
  Sender: FDA-Public Use
  Company Number: BR-NOVARTISPH-NVSC2022BR110492

PATIENT
  Age: 48 Year
  Sex: Female

DRUGS (4)
  1. KISQALI [Suspect]
     Active Substance: RIBOCICLIB
     Indication: Breast cancer metastatic
     Dosage: 3 DOSAGE FORM (3 TABLETS (21 DAYS AND STOP 7 DAYS)
     Route: 048
     Dates: start: 20210802
  2. KISQALI [Suspect]
     Active Substance: RIBOCICLIB
     Dosage: 2 DOSAGE FORM (2 TABLET,  (21 DAYS AND STOP 7 DAYS)
     Route: 065
  3. TAMOXIFEN [Suspect]
     Active Substance: TAMOXIFEN
     Indication: Breast cancer metastatic
     Dosage: UNK
     Route: 065
     Dates: start: 201501, end: 202105
  4. FULVESTRANT [Suspect]
     Active Substance: FULVESTRANT
     Indication: Breast cancer metastatic
     Dosage: UNK, QMO
     Route: 065
     Dates: start: 20210802

REACTIONS (13)
  - Metastases to thorax [Unknown]
  - Metastases to pleura [Unknown]
  - Spinal cord disorder [Unknown]
  - Drug ineffective [Recovered/Resolved]
  - Pain [Not Recovered/Not Resolved]
  - Ill-defined disorder [Unknown]
  - Arthralgia [Not Recovered/Not Resolved]
  - Blood pressure abnormal [Recovering/Resolving]
  - Feeling abnormal [Recovered/Resolved]
  - COVID-19 [Recovered/Resolved with Sequelae]
  - Decreased immune responsiveness [Unknown]
  - Neck pain [Unknown]
  - Back pain [Unknown]

NARRATIVE: CASE EVENT DATE: 20210301
